FAERS Safety Report 5828462-3 (Version None)
Quarter: 2008Q3

REPORT INFORMATION
  Report Type: 
  Country: None (occurrence: None)
  Receive Date: 20080729
  Receipt Date: 20080715
  Transmission Date: 20090109
  Serious: Yes (Disabling)
  Sender: FDA-Public Use
  Company Number: 2008001684

PATIENT
  Age: 74 Year
  Sex: Female

DRUGS (7)
  1. ERLOTINIB (ERLOTINIB) (TABLET) (ERLOTINIB) [Suspect]
     Indication: PANCREATIC CARCINOMA METASTATIC
     Dosage: 150 MG QD ORAL; 100 MG QD ORAL
     Route: 048
     Dates: start: 20080311, end: 20080710
  2. ERLOTINIB (ERLOTINIB) (TABLET) (ERLOTINIB) [Suspect]
     Indication: PANCREATIC CARCINOMA METASTATIC
     Dosage: 150 MG QD ORAL; 100 MG QD ORAL
     Route: 048
     Dates: start: 20080428, end: 20080710
  3. GEMCITABINE [Suspect]
     Indication: PANCREATIC CARCINOMA METASTATIC
     Dosage: 1800 MG QWEEK, INTRAVENOUS
     Route: 042
     Dates: start: 20080311
  4. CORTISONE (CORTISONE) [Concomitant]
  5. MORPHINE [Concomitant]
  6. DIPYRONE TAB [Concomitant]
  7. ENOXAPARIN SODIUM [Concomitant]

REACTIONS (2)
  - PERICARDIAL EFFUSION [None]
  - PLEURAL EFFUSION [None]
